FAERS Safety Report 4595231-4 (Version None)
Quarter: 2005Q1

REPORT INFORMATION
  Report Type: 
  Country: None (occurrence: None)
  Receive Date: 20050224
  Receipt Date: 20050211
  Transmission Date: 20050727
  Serious: Yes (Congenital Anomaly, Other)
  Sender: FDA-Public Use
  Company Number: 2004094522

PATIENT
  Sex: Female

DRUGS (8)
  1. CELEBREX [Suspect]
     Indication: OSTEOARTHRITIS
     Dosage: 200 MG (200 MG, 1 IN 1 D), ORAL
     Route: 048
     Dates: start: 19991123
  2. TAMOXIFEN (TAMOXIFEN) [Concomitant]
  3. ATORVASTATIN (ATORVASTATIN) [Concomitant]
  4. DIGOXIN [Concomitant]
  5. DIAZEPAM [Concomitant]
  6. ASPIRIN [Concomitant]
  7. VITAMINS (VITAMINS) [Concomitant]
  8. ACETAMINOPHEN [Concomitant]

REACTIONS (13)
  - ARTHRALGIA [None]
  - BREAST CANCER [None]
  - CARDIAC ARREST [None]
  - CATARACT NUCLEAR [None]
  - HEADACHE [None]
  - HEARING IMPAIRED [None]
  - HERPES ZOSTER [None]
  - IMPAIRED DRIVING ABILITY [None]
  - ISCHAEMIA [None]
  - MACULOPATHY [None]
  - OPTIC ISCHAEMIC NEUROPATHY [None]
  - REFUSAL OF TREATMENT BY PATIENT [None]
  - TINNITUS [None]
